FAERS Safety Report 16835978 (Version 1)
Quarter: 2019Q3

REPORT INFORMATION
  Report Type: Report from Study
  Country: EG (occurrence: EG)
  Receive Date: 20190920
  Receipt Date: 20190920
  Transmission Date: 20191005
  Serious: Yes (Other)
  Sender: FDA-Public Use
  Company Number: PHHY2019EG216318

PATIENT
  Age: 35 Year
  Sex: Male

DRUGS (2)
  1. TASIGNA [Suspect]
     Active Substance: NILOTINIB
     Indication: CHRONIC MYELOID LEUKAEMIA
     Dosage: 800 MG, PER DAY
     Route: 048
     Dates: start: 2012
  2. GLIVEC [Suspect]
     Active Substance: IMATINIB MESYLATE
     Indication: CHRONIC MYELOID LEUKAEMIA
     Dosage: 400 MG, QD
     Route: 048
     Dates: start: 200903, end: 2012

REACTIONS (9)
  - Cytogenetic analysis abnormal [Recovering/Resolving]
  - Fatigue [Recovering/Resolving]
  - Hypokinesia [Not Recovered/Not Resolved]
  - Drug ineffective [Unknown]
  - Hepatic cirrhosis [Recovering/Resolving]
  - Hepatic enzyme increased [Recovering/Resolving]
  - Jaundice [Recovering/Resolving]
  - Pyrexia [Recovering/Resolving]
  - Vomiting [Recovering/Resolving]

NARRATIVE: CASE EVENT DATE: 2012
